FAERS Safety Report 7733705-5 (Version None)
Quarter: 2011Q3

REPORT INFORMATION
  Report Type: 
  Country: None (occurrence: None)
  Receive Date: 20110902
  Receipt Date: 20110902
  Transmission Date: 20111222
  Serious: Yes (Disabling)
  Sender: FDA-Public Use
  Company Number: None

PATIENT
  Sex: Female
  Weight: 51.2565 kg

DRUGS (2)
  1. BONIVA [Suspect]
     Dosage: 1 DAILY
     Dates: start: 20070101, end: 20090101
  2. ACTONEL [Suspect]
     Indication: BONE DISORDER
     Dosage: 1 DAILY
     Dates: start: 20090101

REACTIONS (3)
  - LOOSE TOOTH [None]
  - TOOTHACHE [None]
  - MEDICAL DEVICE COMPLICATION [None]
